FAERS Safety Report 7343099-5 (Version None)
Quarter: 2011Q1

REPORT INFORMATION
  Report Type: 
  Country: None (occurrence: None)
  Receive Date: 20110310
  Receipt Date: 20110228
  Transmission Date: 20110831
  Serious: Yes (Death, Other)
  Sender: FDA-Public Use
  Company Number: US-ELI_LILLY_AND_COMPANY-US201103000125

PATIENT
  Age: 67 Year
  Sex: Male

DRUGS (2)
  1. EFFIENT [Suspect]
     Indication: STENT PLACEMENT
     Dosage: 10 MG, UNKNOWN
  2. ASPIRIN [Concomitant]

REACTIONS (4)
  - HEADACHE [None]
  - NAUSEA [None]
  - DEATH [None]
  - HAEMORRHAGE [None]
